FAERS Safety Report 5512751-6 (Version None)
Quarter: 2007Q4

REPORT INFORMATION
  Report Type: 
  Country: None (occurrence: None)
  Receive Date: 20071108
  Receipt Date: 20071026
  Transmission Date: 20080405
  Serious: Yes (Hospitalization)
  Sender: FDA-Public Use
  Company Number: 239259K07USA

PATIENT
  Age: 24 Year
  Sex: Female

DRUGS (2)
  1. REBIF [Suspect]
     Indication: MULTIPLE SCLEROSIS
     Dosage: 22 MCG, 3 IN 1 WEEKS, SUBCUTANEOUS
     Route: 058
     Dates: start: 20070410
  2. LOESTRIN 24 (ANOVLAR) [Suspect]
     Dates: start: 20071001, end: 20071001

REACTIONS (4)
  - MENSTRUATION IRREGULAR [None]
  - MUSCLE STRAIN [None]
  - PAIN [None]
  - PULMONARY THROMBOSIS [None]
